FAERS Safety Report 17655005 (Version 5)
Quarter: 2020Q2

REPORT INFORMATION
  Report Type: Spontaneous
  Country: US (occurrence: US)
  Receive Date: 20200410
  Receipt Date: 20200429
  Transmission Date: 20200713
  Serious: Yes (Hospitalization, Other)
  Sender: FDA-Public Use
  Company Number: US-PFIZER INC-2020145378

PATIENT
  Age: 21 Year
  Sex: Female

DRUGS (4)
  1. FENTANYL CITRATE. [Suspect]
     Active Substance: FENTANYL CITRATE
     Dosage: UNK
     Route: 042
     Dates: start: 2016, end: 2016
  2. BENZYLPENICILLIN POTASSIUM [Suspect]
     Active Substance: PENICILLIN G POTASSIUM
     Dosage: UNK
  3. LIDOCAINE. [Concomitant]
     Active Substance: LIDOCAINE
     Indication: EPIDURAL TEST DOSE
     Dosage: 3 ML
     Route: 008
  4. BUPIVACAINE HCL [Suspect]
     Active Substance: BUPIVACAINE HYDROCHLORIDE
     Dosage: UNK
     Route: 042
     Dates: start: 2016, end: 2016

REACTIONS (10)
  - Maternal exposure during pregnancy [Recovered/Resolved]
  - Hypoaesthesia oral [Recovering/Resolving]
  - Apnoea [Recovering/Resolving]
  - Incorrect route of product administration [Unknown]
  - Wrong product administered [Unknown]
  - Hypotension [Recovering/Resolving]
  - Seizure [Recovering/Resolving]
  - Tachycardia [Recovering/Resolving]
  - Stupor [Recovering/Resolving]
  - Tinnitus [Recovering/Resolving]

NARRATIVE: CASE EVENT DATE: 2016
